FAERS Safety Report 12418623 (Version 1)
Quarter: 2016Q2

REPORT INFORMATION
  Report Type: Spontaneous
  Country: CA (occurrence: CA)
  Receive Date: 20160531
  Receipt Date: 20160531
  Transmission Date: 20160815
  Serious: Yes (Death, Hospitalization, Disabling, Other)
  Sender: FDA-Public Use
  Company Number: CA-APOTEX-2016AP008779

PATIENT
  Age: 69 Year
  Sex: Male

DRUGS (4)
  1. APO-RISPERIDONE [Suspect]
     Active Substance: RISPERIDONE
     Indication: CONFUSIONAL STATE
  2. LORAZEPAM. [Concomitant]
     Active Substance: LORAZEPAM
     Indication: ENCEPHALOPATHY
  3. APO-RISPERIDONE [Suspect]
     Active Substance: RISPERIDONE
     Indication: ENCEPHALOPATHY
     Dosage: 0.5 MG, TID
     Route: 065
  4. LORAZEPAM. [Concomitant]
     Active Substance: LORAZEPAM
     Indication: CONFUSIONAL STATE
     Dosage: 0.5 TO 1.0 MG UP TO SIX TIMES DAILY AS NEEDED
     Route: 065

REACTIONS (3)
  - Parkinsonism [Unknown]
  - Encephalopathy [Unknown]
  - Dementia [Unknown]
